FAERS Safety Report 13111004 (Version 1)
Quarter: 2017Q1

REPORT INFORMATION
  Report Type: Spontaneous
  Country: US (occurrence: US)
  Receive Date: 20170112
  Receipt Date: 20170112
  Transmission Date: 20170428
  Serious: No
  Sender: FDA-Public Use
  Company Number: US-SHIRE-US201700109

PATIENT
  Sex: Male
  Weight: 82.86 kg

DRUGS (1)
  1. XIIDRA [Suspect]
     Active Substance: LIFITEGRAST
     Indication: DRY EYE
     Dosage: 1 GTT, 2X/DAY:BID (1 EYE DROP IN THE MORNING AND 1 DROP IN THE EVENING)
     Route: 047
     Dates: start: 20161118

REACTIONS (1)
  - Instillation site reaction [Unknown]
